FAERS Safety Report 17636628 (Version 5)
Quarter: 2021Q3

REPORT INFORMATION
  Report Type: Spontaneous
  Country: US (occurrence: US)
  Receive Date: 20200407
  Receipt Date: 20210803
  Transmission Date: 20211014
  Serious: Yes (Other)
  Sender: FDA-Public Use
  Company Number: US-PFIZER INC-2019348085

PATIENT
  Age: 70 Year
  Sex: Female
  Weight: 74.84 kg

DRUGS (5)
  1. MENEST [Suspect]
     Active Substance: ESTROGENS, ESTERIFIED
     Indication: MENOPAUSAL SYMPTOMS
     Dosage: 0.625 MG, 1X/DAY
     Route: 048
  2. AMLODIPINE BESILATE [Concomitant]
     Active Substance: AMLODIPINE BESYLATE
     Indication: HYPERTENSION
     Dosage: 2.5 MG, 1X/DAY
     Route: 048
     Dates: start: 20210708
  3. MENEST [Suspect]
     Active Substance: ESTROGENS, ESTERIFIED
     Indication: MENOPAUSAL SYMPTOMS
     Dosage: 0.625 MG, 1X/DAY(USUALLY IN THE MORNING)
     Route: 048
     Dates: end: 20210719
  4. MENEST [Suspect]
     Active Substance: ESTROGENS, ESTERIFIED
     Indication: NAUSEA
     Dosage: 0.625 MG, 1X/DAY
     Route: 048
     Dates: end: 202002
  5. MENEST [Suspect]
     Active Substance: ESTROGENS, ESTERIFIED
     Indication: HORMONE REPLACEMENT THERAPY

REACTIONS (4)
  - Hypothalamo-pituitary disorder [Unknown]
  - Intentional product misuse [Unknown]
  - Headache [Unknown]
  - Sinusitis [Unknown]
